FAERS Safety Report 7296919-7 (Version None)
Quarter: 2011Q1

REPORT INFORMATION
  Report Type: 
  Country: None (occurrence: None)
  Receive Date: 20110204
  Receipt Date: 20110121
  Transmission Date: 20110831
  Serious: Yes (Other)
  Sender: FDA-Public Use
  Company Number: 2011000366

PATIENT
  Age: 92 Year
  Sex: Male

DRUGS (1)
  1. TARCEVA [Suspect]
     Indication: LUNG ADENOCARCINOMA
     Dosage: (75 MG), ORAL
     Route: 048
     Dates: start: 20070816

REACTIONS (5)
  - RASH [None]
  - HAEMATURIA [None]
  - GASTROINTESTINAL HAEMORRHAGE [None]
  - METASTASES TO LYMPH NODES [None]
  - INTESTINAL OBSTRUCTION [None]
